FAERS Safety Report 9665161 (Version 1)
Quarter: 2013Q4

REPORT INFORMATION
  Report Type: Spontaneous
  Country: CH (occurrence: CH)
  Receive Date: 20131101
  Receipt Date: 20131101
  Transmission Date: 20140711
  Serious: Yes (Life-Threatening, Hospitalization)
  Sender: FDA-Public Use
  Company Number: CH-ASTRAZENECA-2013SE80429

PATIENT
  Age: 84 Year
  Sex: Male

DRUGS (13)
  1. SEROQUEL [Suspect]
     Route: 048
     Dates: start: 20130710, end: 20130711
  2. MORPHINE [Suspect]
     Indication: ABDOMINAL PAIN
     Route: 058
     Dates: start: 20130710
  3. MORPHINE [Suspect]
     Indication: PELVIC PAIN
     Route: 058
     Dates: start: 20130710
  4. DISTRANEURINE [Suspect]
     Route: 048
     Dates: start: 20130710, end: 20130710
  5. NOZINAN [Suspect]
     Route: 048
     Dates: start: 20130710, end: 20130710
  6. DIGOXINE [Suspect]
     Route: 048
     Dates: start: 20130709
  7. CLEXANE [Concomitant]
     Indication: ATRIAL FIBRILLATION
     Route: 058
  8. CLEXANE [Concomitant]
     Indication: ATRIAL FLUTTER
     Route: 058
  9. CITALOPRAM [Concomitant]
     Indication: DEPRESSION
     Route: 048
  10. DAFALGAN [Concomitant]
     Indication: PAIN
     Route: 048
  11. TOREM [Concomitant]
     Route: 048
  12. ENALAPRIL [Concomitant]
     Indication: ESSENTIAL HYPERTENSION
     Route: 048
  13. PRADIF [Concomitant]
     Indication: BENIGN PROSTATIC HYPERPLASIA
     Route: 048

REACTIONS (3)
  - Coma [Unknown]
  - Somnolence [Recovered/Resolved]
  - Intentional overdose [Unknown]
